FAERS Safety Report 18436546 (Version 2)
Quarter: 2020Q4

REPORT INFORMATION
  Report Type: Spontaneous
  Country: US (occurrence: US)
  Receive Date: 20201028
  Receipt Date: 20201105
  Transmission Date: 20210114
  Serious: Yes (Disabling, Other)
  Sender: FDA-Public Use
  Company Number: US-PFIZER INC-2020415269

PATIENT
  Age: 59 Year
  Sex: Female
  Weight: 88.45 kg

DRUGS (1)
  1. TOLTERODINE TARTRATE. [Suspect]
     Active Substance: TOLTERODINE TARTRATE
     Indication: AUTOMATIC BLADDER
     Dosage: 4 MG, 1X/DAY
     Route: 048

REACTIONS (11)
  - Condition aggravated [Unknown]
  - Oropharyngeal pain [Unknown]
  - Glaucoma [Unknown]
  - Product use in unapproved indication [Unknown]
  - Memory impairment [Unknown]
  - Body height decreased [Unknown]
  - Dry mouth [Unknown]
  - Osteopenia [Unknown]
  - Sleep apnoea syndrome [Unknown]
  - Off label use [Unknown]
  - Visual impairment [Unknown]

NARRATIVE: CASE EVENT DATE: 2017
